FAERS Safety Report 17433108 (Version 1)
Quarter: 2020Q1

REPORT INFORMATION
  Report Type: Spontaneous
  Country: IT (occurrence: IT)
  Receive Date: 20200219
  Receipt Date: 20200219
  Transmission Date: 20200409
  Serious: Yes (Hospitalization, Other)
  Sender: FDA-Public Use
  Company Number: IT-AMGEN-ITASP2020026221

PATIENT
  Age: 47 Year
  Sex: Male

DRUGS (3)
  1. VECTIBIX [Suspect]
     Active Substance: PANITUMUMAB
     Indication: RECTAL ADENOCARCINOMA
     Dosage: 6 MICROGRAM/KILOGRAM, CYCLICAL
     Route: 042
     Dates: start: 20200109, end: 20200109
  2. OXALIPLATINO SUN [Concomitant]
     Active Substance: OXALIPLATIN
     Indication: RECTAL ADENOCARCINOMA
     Dosage: 85 MILLIGRAM/SQ. METER
     Route: 042
     Dates: start: 20200109, end: 20200109
  3. FLUOROURACILE TEVA [Concomitant]
     Active Substance: FLUOROURACIL
     Indication: RECTAL ADENOCARCINOMA
     Dosage: 400 MILLIGRAM/SQ. METER
     Route: 042
     Dates: start: 20200109, end: 20200109

REACTIONS (2)
  - Arteriospasm coronary [Recovered/Resolved]
  - Angina pectoris [Recovered/Resolved]

NARRATIVE: CASE EVENT DATE: 20200110
